FAERS Safety Report 5406231-6 (Version None)
Quarter: 2007Q3

REPORT INFORMATION
  Report Type: 
  Country: None (occurrence: None)
  Receive Date: 20070802
  Receipt Date: 20070802
  Transmission Date: 20080115
  Serious: Yes (Life-Threatening)
  Sender: FDA-Public Use
  Company Number: None

PATIENT
  Age: 30 Year
  Sex: Female
  Weight: 39.4629 kg

DRUGS (3)
  1. KARIVA [Suspect]
     Indication: POLYCYSTIC OVARIES
     Dosage: ONE PILL ONCE A DAY PO
     Route: 048
     Dates: start: 20051218, end: 20070217
  2. MIRCETTE [Suspect]
     Indication: POLYCYSTIC OVARIES
     Dosage: ONE PILL ONCE A DAY PO
     Route: 048
     Dates: start: 20051120, end: 20051217
  3. FLINTSTONE'S COMPLETE VITAMIN [Concomitant]

REACTIONS (12)
  - ABDOMINAL RIGIDITY [None]
  - AMNESIA [None]
  - ANOREXIA [None]
  - DISTURBANCE IN ATTENTION [None]
  - FATIGUE [None]
  - HEADACHE [None]
  - HYPOAESTHESIA [None]
  - IMPAIRED WORK ABILITY [None]
  - NIGHTMARE [None]
  - SLEEP DISORDER [None]
  - SUICIDE ATTEMPT [None]
  - WEIGHT DECREASED [None]
